FAERS Safety Report 16644524 (Version 2)
Quarter: 2019Q3

REPORT INFORMATION
  Report Type: Report from Study
  Country: US (occurrence: US)
  Receive Date: 20190729
  Receipt Date: 20190814
  Transmission Date: 20191004
  Serious: Yes (Hospitalization)
  Sender: FDA-Public Use
  Company Number: US-B.I. PHARMACEUTICALS,INC./RIDGEFIELD-2019-BI-030984

PATIENT
  Age: 42 Year
  Sex: Female
  Weight: 94.34 kg

DRUGS (5)
  1. MOBIC [Suspect]
     Active Substance: MELOXICAM
     Indication: PRODUCT USED FOR UNKNOWN INDICATION
     Route: 065
     Dates: end: 20190718
  2. HUMIRA [Suspect]
     Active Substance: ADALIMUMAB
     Indication: COLITIS ULCERATIVE
     Dosage: FORMULATION: SOLUTION FOR INJECTION IN PRE-FILLED PEN,  DOSE 40MG/0.4ML,
     Route: 058
     Dates: start: 201904, end: 201904
  3. HUMIRA [Suspect]
     Active Substance: ADALIMUMAB
     Dosage: FORMULATION: SOLUTION FOR INJECTION IN PRE-FILLED PEN
     Route: 058
     Dates: start: 2019, end: 2019
  4. HUMIRA [Suspect]
     Active Substance: ADALIMUMAB
     Route: 058
     Dates: start: 201905, end: 2019
  5. HUMIRA [Suspect]
     Active Substance: ADALIMUMAB
     Dosage: FORMULATION: SOLUTION FOR INJECTION IN PRE-FILLED PEN
     Route: 058
     Dates: start: 20190614

REACTIONS (23)
  - Diarrhoea [Recovered/Resolved]
  - Tenderness [Unknown]
  - Colitis ulcerative [Recovered/Resolved]
  - Acne [Not Recovered/Not Resolved]
  - Insomnia [Unknown]
  - Abdominal pain [Recovered/Resolved]
  - Arthralgia [Not Recovered/Not Resolved]
  - Loss of personal independence in daily activities [Not Recovered/Not Resolved]
  - Constipation [Recovered/Resolved]
  - Infected bite [Recovered/Resolved]
  - Constipation [Recovered/Resolved]
  - Headache [Not Recovered/Not Resolved]
  - Rhinorrhoea [Not Recovered/Not Resolved]
  - Anxiety [Unknown]
  - Depressed mood [Unknown]
  - Fear [Unknown]
  - Diarrhoea [Recovered/Resolved]
  - Muscular weakness [Unknown]
  - Nausea [Unknown]
  - Pneumonia [Unknown]
  - Abdominal pain upper [Recovered/Resolved]
  - Swelling [Unknown]
  - Diarrhoea [Unknown]

NARRATIVE: CASE EVENT DATE: 2019
